FAERS Safety Report 7150308-4 (Version None)
Quarter: 2010Q4

REPORT INFORMATION
  Report Type: 
  Country: None (occurrence: None)
  Receive Date: 20101123
  Receipt Date: 20101108
  Transmission Date: 20110411
  Serious: Yes (Other)
  Sender: FDA-Public Use
  Company Number: CIP10002162

PATIENT
  Age: 80 Year
  Sex: Female
  Weight: 77.1 kg

DRUGS (21)
  1. ACTONEL [Suspect]
     Indication: OSTEOPOROSIS
     Dosage: 35 MG ONCE WEEKLY, ORAL ; 35 MG ONCE WEEKLY, ORAL
     Route: 048
     Dates: start: 20061013, end: 20080701
  2. ACTONEL [Suspect]
     Indication: OSTEOPOROSIS
     Dosage: 35 MG ONCE WEEKLY, ORAL ; 35 MG ONCE WEEKLY, ORAL
     Route: 048
     Dates: start: 20080901
  3. FOSAMAX [Suspect]
     Indication: OSTEOPOROSIS
     Dosage: 70 MG ONCE WEEKLY, ORAL
     Route: 048
     Dates: start: 20010626
  4. LOTREL /01289101/ (AMLODIPINE, BENAZEPRIL HYDROCHLORIDE) [Concomitant]
  5. SYNTHROID [Concomitant]
  6. TOPROL-XL [Concomitant]
  7. CELEBREX [Concomitant]
  8. DARVOCET-N (DEXROPROPOXYPHENE NAPSILATE, PARACETAMOL) [Concomitant]
  9. VYTORIN [Concomitant]
  10. ZOLOFT [Concomitant]
  11. LOVAZA [Concomitant]
  12. MULTIVITAMINS (ASCORBIC ACID, ERGOCALCIFEROL, FOLIC ACID, NICOTINAMIDE [Concomitant]
  13. OTHER ANALGESICS AND ANTIPYRETICS [Concomitant]
  14. CALCIUM (CALCIUM) [Concomitant]
  15. CENTRUM SILVER /01292501/ (ASCORBIC ACID, CALCIUM, MINERALS NOS, RETIN [Concomitant]
  16. ZOCOR [Concomitant]
  17. LOTRISONE [Concomitant]
  18. REPLIVA (SUCCINIC ACID) [Concomitant]
  19. ACIPHEX [Concomitant]
  20. VESICARE /01735901/ (SOLIEFNACIN) [Concomitant]
  21. MOBIC [Concomitant]

REACTIONS (20)
  - BONE DISORDER [None]
  - DENTAL CARIES [None]
  - FACIAL PAIN [None]
  - FEMUR FRACTURE [None]
  - GINGIVAL PAIN [None]
  - GINGIVAL SWELLING [None]
  - IMPAIRED HEALING [None]
  - LOW TURNOVER OSTEOPATHY [None]
  - MEDICAL DEVICE COMPLICATION [None]
  - MOUTH ULCERATION [None]
  - MUSCULOSKELETAL DISCOMFORT [None]
  - MUSCULOSKELETAL PAIN [None]
  - OSTEONECROSIS OF JAW [None]
  - PAIN IN JAW [None]
  - PATHOLOGICAL FRACTURE [None]
  - SPINAL FRACTURE [None]
  - STRESS FRACTURE [None]
  - TOOTH ABSCESS [None]
  - TOOTH FRACTURE [None]
  - TOOTHACHE [None]
